FAERS Safety Report 23371638 (Version 1)
Quarter: 2024Q1

REPORT INFORMATION
  Report Type: Spontaneous
  Country: US (occurrence: US)
  Receive Date: 20240105
  Receipt Date: 20240105
  Transmission Date: 20240410
  Serious: No
  Sender: FDA-Public Use
  Company Number: US-BIOVITRUM-2023-US-021594

PATIENT
  Age: 7 Month
  Sex: Female
  Weight: 5.8 kg

DRUGS (2)
  1. SYNAGIS [Suspect]
     Active Substance: PALIVIZUMAB
     Indication: Respiratory disorder neonatal
     Dosage: ONCE A MONTH
     Route: 030
     Dates: start: 20230925
  2. SYNAGIS [Suspect]
     Active Substance: PALIVIZUMAB
     Indication: Premature baby

REACTIONS (1)
  - SARS-CoV-2 test positive [Unknown]

NARRATIVE: CASE EVENT DATE: 20231226
